FAERS Safety Report 9932608 (Version 1)
Quarter: 2014Q1

REPORT INFORMATION
  Report Type: Spontaneous
  Country: US (occurrence: US)
  Receive Date: 20140228
  Receipt Date: 20140228
  Transmission Date: 20141002
  Serious: No
  Sender: FDA-Public Use
  Company Number: US-GLAXOSMITHKLINE-A1014421A

PATIENT
  Age: 59 Year
  Sex: Female

DRUGS (2)
  1. IMITREX [Suspect]
     Indication: MIGRAINE
     Route: 065
  2. EXCEDRIN [Suspect]
     Indication: MIGRAINE
     Route: 048

REACTIONS (1)
  - Medication overuse headache [Unknown]
